FAERS Safety Report 10203441 (Version 1)
Quarter: 2014Q2

REPORT INFORMATION
  Report Type: Spontaneous
  Country: GB (occurrence: None)
  Receive Date: 20140523
  Receipt Date: 20140523
  Transmission Date: 20141212
  Serious: Yes (Other)
  Sender: FDA-Public Use
  Company Number: 2014000146

PATIENT
  Age: 60 Year
  Sex: Male
  Weight: 86 kg

DRUGS (19)
  1. ACEON (PERINDOPRIL ERBUMINE) TABLET, 8MG [Suspect]
     Indication: HYPERTENSION
     Dosage: 8 MG, UNK, ORAL
     Route: 048
     Dates: start: 20130301
  2. ALPROSTADIL (ALPROSTADIL) [Concomitant]
  3. ACETYLSALICYLIC ACID (ACETYLSALICYLIC ACID) [Concomitant]
  4. ATORVASTATIN (ATORVASTATIN) [Concomitant]
  5. CHLORPHENIRAMINE (CHLORPHENIRAMINE) [Concomitant]
  6. EZETIMIBE (EZETIMIBE) (TABLET) [Concomitant]
  7. FERROUS FUMARATE (FERROUS FUMARTE) [Concomitant]
  8. FLUOXETINE (FLUOXETINE) [Concomitant]
  9. FOLIC ACID (FOLIC ACID) [Concomitant]
  10. GLICLAZIDE (GLICLAZIDE) [Concomitant]
  11. GLYCERYL TRINITRATE (GLYCERYL TRINITRATE) [Concomitant]
  12. KETOCONAZOLE (KETOCONAZOLE) [Concomitant]
  13. LANTUS (INSULIN GLARGINE) [Concomitant]
  14. METFORMIN (METFORMIN) [Concomitant]
  15. MONOMIL (ISOSORBIDE MONONITRATE) [Concomitant]
  16. NICORANDIL (NICORANDIL) [Concomitant]
  17. OMEPRAZOLE (OMEPRAZOLE) [Concomitant]
  18. PROPRANOLOL (PROPRANOLOL) [Concomitant]
  19. TERBINAFINE (TERBINAFINE) [Concomitant]

REACTIONS (2)
  - Syncope [None]
  - Product substitution issue [None]
